FAERS Safety Report 9564981 (Version 2)
Quarter: 2013Q3

REPORT INFORMATION
  Report Type: Report from Study
  Country: DE (occurrence: DE)
  Receive Date: 20130930
  Receipt Date: 20130930
  Transmission Date: 20140515
  Serious: Yes (Hospitalization, Other)
  Sender: FDA-Public Use
  Company Number: DE-ASTELLAS-2012EU000791

PATIENT
  Age: 44 Year
  Sex: Male
  Weight: 61 kg

DRUGS (25)
  1. TACROLIMUS MR4 CAPSULES [Suspect]
     Indication: RENAL TRANSPLANT
     Dosage: 12 MG, UID/QD
     Route: 048
     Dates: start: 20090927
  2. TACROLIMUS MR4 CAPSULES [Suspect]
     Dosage: 24 MG, UID/QD
     Route: 048
     Dates: start: 20090529, end: 20090621
  3. TACROLIMUS MR4 CAPSULES [Suspect]
     Dosage: 14 MG, UID/QD
     Route: 048
     Dates: start: 20090626, end: 20090628
  4. TACROLIMUS MR4 CAPSULES [Suspect]
     Dosage: 6 MG, UID/QD
     Route: 048
     Dates: start: 20090629, end: 20091016
  5. SIMULECT [Suspect]
     Indication: RENAL TRANSPLANT
     Dosage: 20 MG, UID/QD
     Route: 042
     Dates: start: 20090528
  6. CELLCEPT [Suspect]
     Indication: RENAL TRANSPLANT
     Dosage: 500 MG, BID
     Route: 048
     Dates: start: 20090529
  7. PREDNISONE [Suspect]
     Indication: RENAL TRANSPLANT
     Dosage: 7.5 MG, UID/QD
     Route: 048
     Dates: start: 20090927
  8. PREDNISONE [Suspect]
     Indication: TRANSPLANT REJECTION
     Dosage: 20 MG, UID/QD
     Route: 048
     Dates: start: 20090529, end: 20090721
  9. PREDNISONE [Suspect]
     Dosage: 500 MG, UID/QD
     Route: 048
     Dates: start: 20090624, end: 20090624
  10. PREDNISONE [Suspect]
     Dosage: 250 MG, UID/QD
     Route: 048
     Dates: start: 20090627, end: 20090627
  11. PREDNISONE [Suspect]
     Dosage: 100 MG, UID/QD
     Route: 042
  12. PREDNISONE [Suspect]
     Dosage: 7.5 MG, UID/QD
     Route: 048
     Dates: start: 20090826
  13. PREDNISONE [Suspect]
     Dosage: 15 MG, UNKNOWN/D
     Route: 065
     Dates: start: 20090825
  14. PANTOZOL [Concomitant]
     Dosage: 40 DF, UNKNOWN/D
     Route: 065
  15. KARVEA [Concomitant]
     Dosage: 150 MG, UNKNOWN/D
     Route: 065
     Dates: end: 20090630
  16. KARVEA [Concomitant]
     Dosage: 75 MG, UNKNOWN/D
     Route: 065
     Dates: start: 20090701, end: 20090703
  17. KARVEA [Concomitant]
     Dosage: 35 MG, UNKNOWN/D
     Route: 065
     Dates: start: 20090704
  18. NEBILET [Concomitant]
     Dosage: 5 MG, UID/QD
     Route: 065
     Dates: end: 20090703
  19. NEBILET [Concomitant]
     Dosage: 2.5 MG, UNKNOWN/D
     Route: 065
     Dates: start: 20090704
  20. BICANORM [Concomitant]
     Dosage: UNK
     Route: 065
  21. TOREN [Concomitant]
     Dosage: 10 G, UID/QD
     Route: 065
  22. VALCYTE [Concomitant]
     Dosage: 450 MG, 3XWEEKLY
     Route: 065
     Dates: end: 20090930
  23. VALCYTE [Concomitant]
     Dosage: 450 MG, 3XWEEKLY
     Route: 065
     Dates: start: 20091001
  24. KEPINOL [Concomitant]
     Dosage: 480 MG, 3XWEEKLY
     Route: 065
  25. CIPROFLOXACIN [Concomitant]
     Indication: PYREXIA
     Dosage: 250 MG, BID
     Route: 065

REACTIONS (6)
  - Nephrosclerosis [Recovered/Resolved]
  - Glomerulonephritis [Recovered/Resolved]
  - Urosepsis [Recovered/Resolved]
  - Hydronephrosis [Recovered/Resolved]
  - Urinary tract infection [Recovered/Resolved]
  - Renal tubular disorder [Recovered/Resolved]
